FAERS Safety Report 12135305 (Version 1)
Quarter: 2016Q1

REPORT INFORMATION
  Report Type: Spontaneous
  Country: JP (occurrence: JP)
  Receive Date: 20160302
  Receipt Date: 20160302
  Transmission Date: 20160526
  Serious: Yes (Death, Life-Threatening, Other)
  Sender: FDA-Public Use
  Company Number: JP-ROCHE-1718911

PATIENT
  Age: 53 Year
  Sex: Male
  Weight: 72 kg

DRUGS (8)
  1. PEMETREXED SODIUM HYDRATE [Concomitant]
     Active Substance: PEMETREXED
     Indication: LUNG ADENOCARCINOMA
     Route: 065
     Dates: start: 20140805, end: 20141128
  2. AVASTIN [Suspect]
     Active Substance: BEVACIZUMAB
     Indication: LUNG ADENOCARCINOMA
     Dosage: TREATMENT LINE 3
     Route: 041
     Dates: start: 20150610, end: 20150702
  3. RINDERON V [Suspect]
     Active Substance: BETAMETHASONE VALERATE
     Indication: BRAIN OEDEMA
     Route: 041
     Dates: start: 20150715
  4. LOXOPROFEN [Suspect]
     Active Substance: LOXOPROFEN
     Indication: PAIN
     Dosage: TAKEN AS NEEDED
     Route: 048
     Dates: start: 20150704
  5. REBAMIPIDE [Concomitant]
     Active Substance: REBAMIPIDE
     Indication: PAIN
     Dosage: TAKEN AS NEEDED
     Route: 048
     Dates: start: 20150704
  6. AVASTIN [Suspect]
     Active Substance: BEVACIZUMAB
     Indication: LUNG ADENOCARCINOMA
     Dosage: TREATMENT LINE: 1
     Route: 041
     Dates: start: 20140805, end: 20141128
  7. CISPLATIN. [Concomitant]
     Active Substance: CISPLATIN
     Indication: LUNG ADENOCARCINOMA
     Route: 065
     Dates: start: 20140805, end: 20141128
  8. TS-1 [Concomitant]
     Active Substance: GIMERACIL\OTERACIL\TEGAFUR
     Indication: LUNG ADENOCARCINOMA
     Dosage: COMPLETED TREATMENT CYCLE NUMBER: 2
     Route: 048
     Dates: start: 20150610, end: 20150715

REACTIONS (6)
  - Brain oedema [Unknown]
  - Gastric ulcer [Recovered/Resolved]
  - Pain [Unknown]
  - Peritonitis [Unknown]
  - Small intestinal perforation [Recovered/Resolved with Sequelae]
  - Infection [Unknown]

NARRATIVE: CASE EVENT DATE: 201412
